FAERS Safety Report 22046753 (Version 2)
Quarter: 2023Q1

REPORT INFORMATION
  Report Type: Report from Study
  Country: BR (occurrence: BR)
  Receive Date: 20230228
  Receipt Date: 20230327
  Transmission Date: 20230418
  Serious: Yes (Hospitalization)
  Sender: FDA-Public Use
  Company Number: BR-BIOGEN-2023BI01189970

PATIENT
  Sex: Female
  Weight: 68 kg

DRUGS (2)
  1. TYSABRI [Suspect]
     Active Substance: NATALIZUMAB
     Indication: Multiple sclerosis
     Route: 050
     Dates: start: 20220919, end: 20230116
  2. FOLIC ACID [Concomitant]
     Active Substance: FOLIC ACID
     Indication: Postpartum disorder
     Route: 050
     Dates: start: 202302

REACTIONS (2)
  - Meconium in amniotic fluid [Recovered/Resolved]
  - Maternal exposure during pregnancy [Recovered/Resolved]
